FAERS Safety Report 8678929 (Version 3)
Quarter: 2012Q4

REPORT INFORMATION
  Report Type: Report from Study
  Country: FR (occurrence: FR)
  Receive Date: 20120723
  Receipt Date: 20121122
  Transmission Date: 20130627
  Serious: Yes (Life-Threatening, Hospitalization, Other)
  Sender: FDA-Public Use
  Company Number: FR-ROCHE-1083606

PATIENT
  Age: 57 Year
  Sex: Female
  Weight: 70 kg

DRUGS (8)
  1. BEVACIZUMAB [Suspect]
     Indication: BREAST CANCER
     Dosage: last dose prior to SAE on 7/Jun/2012
     Route: 042
     Dates: start: 20110729, end: 20120702
  2. CAPECITABINE [Suspect]
     Indication: BREAST CANCER
     Route: 048
     Dates: start: 20110729, end: 20120702
  3. CAPECITABINE [Suspect]
     Route: 048
     Dates: start: 20120710
  4. LEVOTHYROX [Concomitant]
     Route: 065
     Dates: start: 2007
  5. ALTEIS [Concomitant]
     Route: 065
     Dates: start: 2007
  6. ARIXTRA [Concomitant]
     Route: 065
     Dates: start: 2007
  7. ARIXTRA [Concomitant]
     Route: 065
     Dates: start: 20120630, end: 20120702
  8. PARACETAMOL [Concomitant]
     Dosage: 1/g
     Route: 065
     Dates: start: 20120630, end: 20120702

REACTIONS (2)
  - Pulmonary embolism [Recovered/Resolved with Sequelae]
  - Pleural effusion [Recovered/Resolved with Sequelae]
